FAERS Safety Report 19417511 (Version 1)
Quarter: 2021Q2

REPORT INFORMATION
  Report Type: Spontaneous
  Country: US (occurrence: US)
  Receive Date: 20210615
  Receipt Date: 20210615
  Transmission Date: 20210717
  Serious: Yes (Other)
  Sender: FDA-Public Use
  Company Number: None

PATIENT
  Age: 69 Year
  Sex: Female
  Weight: 74.25 kg

DRUGS (2)
  1. INHALERS FOR ASTHMA, MEDICATIONS FOR NEBULIZER [Concomitant]
     Active Substance: UNSPECIFIED INGREDIENT
  2. OXYBUTYNIN. [Suspect]
     Active Substance: OXYBUTYNIN CHLORIDE
     Indication: BLADDER SPASM
     Dosage: ?          QUANTITY:1 TABLET(S);?
     Dates: start: 20210610, end: 20210613

REACTIONS (6)
  - Throat tightness [None]
  - Dysphonia [None]
  - Nasal dryness [None]
  - Anaphylactic reaction [None]
  - Dysphagia [None]
  - Dry mouth [None]
